FAERS Safety Report 5726069-X (Version None)
Quarter: 2008Q2

REPORT INFORMATION
  Report Type: 
  Country: None (occurrence: None)
  Receive Date: 20080502
  Receipt Date: 20080423
  Transmission Date: 20081010
  Serious: Yes (Hospitalization)
  Sender: FDA-Public Use
  Company Number: US-AMGEN-STX271865

PATIENT
  Sex: Female
  Weight: 118 kg

DRUGS (7)
  1. ENBREL [Suspect]
     Indication: RHEUMATOID ARTHRITIS
     Route: 058
     Dates: start: 20070620
  2. METHOTREXATE [Concomitant]
     Indication: RHEUMATOID ARTHRITIS
     Route: 048
     Dates: start: 20060928
  3. FOLIC ACID [Concomitant]
     Dates: start: 20060928
  4. LISINOPRIL [Concomitant]
     Dates: start: 20061219
  5. METOPROLOL TARTRATE [Concomitant]
     Dates: start: 20061206
  6. PREDNISONE [Concomitant]
     Dates: start: 20060928
  7. MELOXICAM [Concomitant]
     Dates: start: 20070710

REACTIONS (2)
  - ARTHRALGIA [None]
  - UTERINE LEIOMYOMA [None]
